FAERS Safety Report 5720938-2 (Version None)
Quarter: 2008Q2

REPORT INFORMATION
  Report Type: 
  Country: None (occurrence: None)
  Receive Date: 20080429
  Receipt Date: 20080414
  Transmission Date: 20081010
  Serious: Yes (Death, Hospitalization)
  Sender: FDA-Public Use
  Company Number: CA-BAYER-200816787GPV

PATIENT
  Age: 53 Year
  Sex: Male

DRUGS (6)
  1. ASPIRIN [Suspect]
     Indication: UNEVALUABLE EVENT
     Route: 065
  2. INDOMETHACIN [Suspect]
     Indication: BACK PAIN
     Dosage: TOTAL DAILY DOSE: 200 MG
  3. TENOFOVIR DISOPROXIL FUMARATE [Suspect]
     Indication: HIV INFECTION
     Route: 065
  4. DIDANOSINE [Concomitant]
     Indication: UNEVALUABLE EVENT
  5. ATAZANAVIR SULFATE [Concomitant]
     Indication: UNEVALUABLE EVENT
  6. RITONAVIR [Concomitant]
     Indication: UNEVALUABLE EVENT

REACTIONS (1)
  - RENAL TUBULAR NECROSIS [None]
